FAERS Safety Report 4969260-2 (Version None)
Quarter: 2006Q2

REPORT INFORMATION
  Report Type: 
  Country: None (occurrence: None)
  Receive Date: 20060405
  Receipt Date: 20060323
  Transmission Date: 20061013
  Serious: Yes (Other)
  Sender: FDA-Public Use
  Company Number: 2006041940

PATIENT
  Age: 68 Year
  Sex: Female
  Weight: 63.5036 kg

DRUGS (5)
  1. CELEBREX [Suspect]
     Indication: OSTEOARTHRITIS
     Dosage: 200 MG (200 MG, 1 IN 1 D), ORAL
     Route: 048
  2. VITAMINS [Concomitant]
  3. CALCIUM GLUCONATE [Concomitant]
  4. ALL OTHER THERAPEUTIC PRODUCTS [Concomitant]
  5. COLACE (DOCUSATE SODIUM) [Concomitant]

REACTIONS (12)
  - CAROTID ARTERY OCCLUSION [None]
  - FEAR [None]
  - GASTRIC DISORDER [None]
  - GASTROINTESTINAL DISORDER [None]
  - HEADACHE [None]
  - HIGH DENSITY LIPOPROTEIN DECREASED [None]
  - HYSTERECTOMY [None]
  - LOW DENSITY LIPOPROTEIN INCREASED [None]
  - MALAISE [None]
  - NAUSEA [None]
  - RADIATION INJURY [None]
  - RENAL DISORDER [None]
